FAERS Safety Report 25156807 (Version 1)
Quarter: 2025Q2

REPORT INFORMATION
  Report Type: Spontaneous
  Country: US (occurrence: US)
  Receive Date: 20250403
  Receipt Date: 20250403
  Transmission Date: 20250716
  Serious: No
  Sender: CIPLA
  Company Number: US-CIPLA LTD.-2025US03789

PATIENT

DRUGS (8)
  1. ALENDRONATE [Suspect]
     Active Substance: ALENDRONATE SODIUM
     Indication: Product used for unknown indication
     Dosage: 35 MILLIGRAM, ONCE A WEEK (QWK)
     Route: 048
     Dates: start: 202501
  2. ATORVASTATIN CALCIUM [Concomitant]
     Active Substance: ATORVASTATIN CALCIUM
     Indication: Blood cholesterol abnormal
     Dosage: 20 MILLIGRAM, QD (ONCE A DAY) (USING FOR A WHILE)
     Route: 065
  3. HYDROCHLOROTHIAZIDE\OLMESARTAN MEDOXOMIL [Concomitant]
     Active Substance: HYDROCHLOROTHIAZIDE\OLMESARTAN MEDOXOMIL
     Indication: Blood pressure abnormal
     Dosage: 25 MILLIGRAM, QD (ONCE A DAY) (USING FOR A WHILE)
     Route: 065
  4. RISEDRONATE SODIUM [Concomitant]
     Active Substance: RISEDRONATE SODIUM
     Indication: Bone disorder
     Dosage: 35 MILLIGRAM, ONCE A WEEK (QWK) (USING FOR A WHILE)
     Route: 065
  5. ESCITALOPRAM OXALATE [Concomitant]
     Active Substance: ESCITALOPRAM OXALATE
     Indication: Depression
     Dosage: 10 MILLIGRAM, QD (ONCE A DAY) (USING FROM A LONG TIME)
     Route: 065
  6. NAPROXEN [Concomitant]
     Active Substance: NAPROXEN
     Indication: Pain
     Route: 065
     Dates: start: 202501
  7. NAPROXEN [Concomitant]
     Active Substance: NAPROXEN
     Indication: Ear pain
  8. NAPROXEN [Concomitant]
     Active Substance: NAPROXEN
     Indication: Ear disorder

REACTIONS (2)
  - Product dose omission issue [Unknown]
  - Pain [Not Recovered/Not Resolved]

NARRATIVE: CASE EVENT DATE: 20250101
